APPROVED DRUG PRODUCT: MINOCYCLINE HYDROCHLORIDE
Active Ingredient: MINOCYCLINE HYDROCHLORIDE
Strength: EQ 100MG BASE
Dosage Form/Route: CAPSULE;ORAL
Application: A065005 | Product #002 | TE Code: AB
Applicant: IMPAX LABORATORIES INC
Approved: Mar 23, 1999 | RLD: No | RS: No | Type: RX